FAERS Safety Report 9146945 (Version 1)
Quarter: 2013Q1

REPORT INFORMATION
  Report Type: Spontaneous
  Country: US (occurrence: None)
  Receive Date: 20130228
  Receipt Date: 20130228
  Transmission Date: 20140127
  Serious: Yes (Hospitalization)
  Sender: FDA-Public Use
  Company Number: None

PATIENT
  Age: 73 Year
  Sex: Female
  Weight: 72.58 kg

DRUGS (1)
  1. CIPROFLOXACIN [Suspect]
     Indication: DIVERTICULITIS
     Dosage: 500MG 2X DAILY ORALLY
     Route: 048
     Dates: start: 20130103, end: 20130106

REACTIONS (3)
  - Tendon pain [None]
  - Arthralgia [None]
  - C-reactive protein [None]
